FAERS Safety Report 19776111 (Version 1)
Quarter: 2021Q3

REPORT INFORMATION
  Report Type: Report from Study
  Country: DE (occurrence: DE)
  Receive Date: 20210901
  Receipt Date: 20210901
  Transmission Date: 20211014
  Serious: Yes (Other)
  Sender: FDA-Public Use
  Company Number: DE-BAYER-2021-201226

PATIENT
  Age: 60 Year
  Sex: Female

DRUGS (1)
  1. BETAFERON [Suspect]
     Active Substance: INTERFERON BETA-1B
     Indication: MULTIPLE SCLEROSIS
     Dosage: 250 ?G, QOD
     Route: 058
     Dates: start: 20010101

REACTIONS (10)
  - Thyroiditis [Not Recovered/Not Resolved]
  - Injection site haematoma [Recovering/Resolving]
  - Injection site induration [Recovering/Resolving]
  - Injection site erythema [Recovering/Resolving]
  - Mood swings [Not Recovered/Not Resolved]
  - Sleep disorder [Not Recovered/Not Resolved]
  - Obsessive rumination [Not Recovered/Not Resolved]
  - Hypertonia [Not Recovered/Not Resolved]
  - Hypothyroidism [Not Recovered/Not Resolved]
  - Lethargy [Not Recovered/Not Resolved]

NARRATIVE: CASE EVENT DATE: 20200101
